FAERS Safety Report 11165021 (Version 4)
Quarter: 2015Q3

REPORT INFORMATION
  Report Type: Report from Study
  Country: ES (occurrence: ES)
  Receive Date: 20150604
  Receipt Date: 20150724
  Transmission Date: 20151125
  Serious: Yes (Hospitalization)
  Sender: FDA-Public Use
  Company Number: ES-INCYTE CORPORATION-2015IN002336

PATIENT
  Age: 68 Year
  Sex: Male
  Weight: 86 kg

DRUGS (5)
  1. INCB18424 (RUXOLITINIB) [Suspect]
     Active Substance: RUXOLITINIB
     Indication: COLORECTAL CANCER METASTATIC
     Dosage: 15 MG, 12 HOURS
     Route: 048
     Dates: start: 20150504, end: 20150522
  2. INCB18424 (RUXOLITINIB) [Suspect]
     Active Substance: RUXOLITINIB
     Dosage: 160 MG, QD
     Route: 048
     Dates: start: 20150504, end: 20150522
  3. REGORAFENIB [Suspect]
     Active Substance: REGORAFENIB
  4. SIMVASTATIN. [Concomitant]
     Active Substance: SIMVASTATIN
     Indication: DYSLIPIDAEMIA
     Dosage: 20 MG EVERY 24 HOURS
  5. METFORMIN [Concomitant]
     Active Substance: METFORMIN HYDROCHLORIDE
     Indication: DIABETES MELLITUS
     Dosage: 850 MG EVERY 12 HOURS

REACTIONS (5)
  - Epistaxis [None]
  - Red blood cell count decreased [None]
  - Diverticulum intestinal haemorrhagic [None]
  - Gastrointestinal haemorrhage [Recovering/Resolving]
  - Haemoglobin decreased [None]

NARRATIVE: CASE EVENT DATE: 20150522
